FAERS Safety Report 22274859 (Version 3)
Quarter: 2023Q2

REPORT INFORMATION
  Report Type: Spontaneous
  Country: US (occurrence: US)
  Receive Date: 20230502
  Receipt Date: 20230523
  Transmission Date: 20230722
  Serious: Yes (Hospitalization, Other)
  Sender: FDA-Public Use
  Company Number: US-009507513-2305USA000328

PATIENT
  Sex: Female

DRUGS (3)
  1. KEYTRUDA [Suspect]
     Active Substance: PEMBROLIZUMAB
     Indication: Genital neoplasm malignant female
     Dosage: UNK
     Dates: start: 202304
  2. TAXOL [Suspect]
     Active Substance: PACLITAXEL
     Dosage: UNK
     Dates: start: 202304
  3. ACRIVASTINE [Suspect]
     Active Substance: ACRIVASTINE
     Dosage: UNK
     Dates: start: 202305

REACTIONS (5)
  - Loss of consciousness [Unknown]
  - Depressed level of consciousness [Unknown]
  - Encephalopathy [Unknown]
  - Snoring [Unknown]
  - Agitation [Unknown]

NARRATIVE: CASE EVENT DATE: 20230401
